FAERS Safety Report 7051805-2 (Version None)
Quarter: 2010Q4

REPORT INFORMATION
  Report Type: 
  Country: None (occurrence: None)
  Receive Date: 20101012
  Receipt Date: 20101001
  Transmission Date: 20110411
  Serious: Yes (Other)
  Sender: FDA-Public Use
  Company Number: 1000016584

PATIENT
  Sex: Male

DRUGS (1)
  1. CELEXA [Suspect]

REACTIONS (2)
  - ALCOHOL POISONING [None]
  - IMPRISONMENT [None]
